FAERS Safety Report 24983216 (Version 5)
Quarter: 2025Q3

REPORT INFORMATION
  Report Type: Spontaneous
  Country: CA (occurrence: CA)
  Receive Date: 20250218
  Receipt Date: 20250701
  Transmission Date: 20251021
  Serious: Yes (Death, Life-Threatening, Hospitalization, Disabling, Congenital Anomaly, Other)
  Sender: Haleon PLC
  Company Number: CA-002147023-NVSC2025CA025456

PATIENT
  Age: 40 Year
  Sex: Female
  Weight: 96 kg

DRUGS (312)
  1. VOLTAREN [Suspect]
     Active Substance: DICLOFENAC SODIUM
     Indication: Product used for unknown indication
  2. VOLTAREN [Suspect]
     Active Substance: DICLOFENAC SODIUM
  3. GOLD [Suspect]
     Active Substance: GOLD
     Indication: Product used for unknown indication
  4. GOLD [Suspect]
     Active Substance: GOLD
  5. PANTOPRAZOLE [Suspect]
     Active Substance: PANTOPRAZOLE
     Indication: Product used for unknown indication
  6. PANTOPRAZOLE [Suspect]
     Active Substance: PANTOPRAZOLE
  7. APREMILAST [Suspect]
     Active Substance: APREMILAST
     Indication: Rheumatoid arthritis
  8. APREMILAST [Suspect]
     Active Substance: APREMILAST
  9. LEFLUNOMIDE [Suspect]
     Active Substance: LEFLUNOMIDE
     Indication: Rheumatoid arthritis
  10. LEFLUNOMIDE [Suspect]
     Active Substance: LEFLUNOMIDE
  11. LEFLUNOMIDE [Suspect]
     Active Substance: LEFLUNOMIDE
     Route: 048
  12. LEFLUNOMIDE [Suspect]
     Active Substance: LEFLUNOMIDE
     Route: 050
  13. LEFLUNOMIDE [Suspect]
     Active Substance: LEFLUNOMIDE
  14. LEFLUNOMIDE [Suspect]
     Active Substance: LEFLUNOMIDE
  15. LEFLUNOMIDE [Suspect]
     Active Substance: LEFLUNOMIDE
     Route: 050
  16. LEFLUNOMIDE [Suspect]
     Active Substance: LEFLUNOMIDE
  17. GOLD SODIUM THIOMALATE [Suspect]
     Active Substance: GOLD SODIUM THIOMALATE
     Indication: Product used for unknown indication
  18. GOLD SODIUM THIOMALATE [Suspect]
     Active Substance: GOLD SODIUM THIOMALATE
  19. TOPIRAMATE [Suspect]
     Active Substance: TOPIRAMATE
     Indication: Migraine
     Dosage: 3 MG, QD, ROUTE : UNKNOWN
  20. TOPIRAMATE [Suspect]
     Active Substance: TOPIRAMATE
     Dosage: 25 MG, QD, ROUTE : UNKNOWN
  21. TOPIRAMATE [Suspect]
     Active Substance: TOPIRAMATE
  22. TOPIRAMATE [Suspect]
     Active Substance: TOPIRAMATE
  23. TOPIRAMATE [Suspect]
     Active Substance: TOPIRAMATE
  24. CALCIUM ASCORBATE [Suspect]
     Active Substance: CALCIUM ASCORBATE
     Indication: Product used for unknown indication
  25. CALCIUM ASCORBATE [Suspect]
     Active Substance: CALCIUM ASCORBATE
     Route: 065
  26. CALCIUM ASCORBATE [Suspect]
     Active Substance: CALCIUM ASCORBATE
  27. CALCIUM ASCORBATE [Suspect]
     Active Substance: CALCIUM ASCORBATE
  28. TRIAMCINOLONE [Suspect]
     Active Substance: TRIAMCINOLONE
     Indication: Product used for unknown indication
  29. FLUMETHASONE PIVALATE [Suspect]
     Active Substance: FLUMETHASONE PIVALATE
     Indication: Product used for unknown indication
  30. FLUMETHASONE PIVALATE [Suspect]
     Active Substance: FLUMETHASONE PIVALATE
  31. RITUXIMAB [Suspect]
     Active Substance: RITUXIMAB
     Indication: Rheumatoid arthritis
     Route: 050
  32. RITUXIMAB [Suspect]
     Active Substance: RITUXIMAB
  33. RITUXIMAB [Suspect]
     Active Substance: RITUXIMAB
  34. RITUXIMAB [Suspect]
     Active Substance: RITUXIMAB
     Route: 050
  35. RITUXIMAB [Suspect]
     Active Substance: RITUXIMAB
  36. RITUXIMAB [Suspect]
     Active Substance: RITUXIMAB
     Route: 050
  37. RITUXIMAB [Suspect]
     Active Substance: RITUXIMAB
  38. RITUXIMAB [Suspect]
     Active Substance: RITUXIMAB
  39. RITUXIMAB [Suspect]
     Active Substance: RITUXIMAB
  40. RITUXIMAB [Suspect]
     Active Substance: RITUXIMAB
  41. RITUXIMAB [Suspect]
     Active Substance: RITUXIMAB
     Route: 016
  42. RITUXIMAB [Suspect]
     Active Substance: RITUXIMAB
  43. RITUXIMAB [Suspect]
     Active Substance: RITUXIMAB
  44. RITUXIMAB [Suspect]
     Active Substance: RITUXIMAB
  45. RITUXIMAB [Suspect]
     Active Substance: RITUXIMAB
     Route: 050
  46. RITUXIMAB [Suspect]
     Active Substance: RITUXIMAB
     Route: 016
  47. RITUXIMAB [Suspect]
     Active Substance: RITUXIMAB
  48. RITUXIMAB [Suspect]
     Active Substance: RITUXIMAB
     Route: 016
  49. RITUXIMAB [Suspect]
     Active Substance: RITUXIMAB
  50. RITUXIMAB [Suspect]
     Active Substance: RITUXIMAB
  51. RITUXIMAB [Suspect]
     Active Substance: RITUXIMAB
  52. RITUXIMAB [Suspect]
     Active Substance: RITUXIMAB
  53. RITUXIMAB [Suspect]
     Active Substance: RITUXIMAB
     Route: 050
  54. RITUXIMAB [Suspect]
     Active Substance: RITUXIMAB
  55. RITUXIMAB [Suspect]
     Active Substance: RITUXIMAB
     Dosage: 2000 MG, QD ROUTE : UNKNOWN
  56. RITUXIMAB [Suspect]
     Active Substance: RITUXIMAB
     Route: 016
  57. RITUXIMAB [Suspect]
     Active Substance: RITUXIMAB
  58. RITUXIMAB [Suspect]
     Active Substance: RITUXIMAB
     Route: 050
  59. RITUXIMAB [Suspect]
     Active Substance: RITUXIMAB
     Route: 050
  60. RITUXIMAB [Suspect]
     Active Substance: RITUXIMAB
     Route: 050
  61. RITUXIMAB [Suspect]
     Active Substance: RITUXIMAB
     Route: 050
  62. RITUXIMAB [Suspect]
     Active Substance: RITUXIMAB
     Route: 050
  63. RITUXIMAB [Suspect]
     Active Substance: RITUXIMAB
  64. RITUXIMAB [Suspect]
     Active Substance: RITUXIMAB
     Route: 050
  65. RITUXIMAB [Suspect]
     Active Substance: RITUXIMAB
  66. RITUXIMAB [Suspect]
     Active Substance: RITUXIMAB
  67. RITUXIMAB [Suspect]
     Active Substance: RITUXIMAB
     Route: 050
  68. RITUXIMAB [Suspect]
     Active Substance: RITUXIMAB
     Route: 050
  69. RITUXIMAB [Suspect]
     Active Substance: RITUXIMAB
  70. RITUXIMAB [Suspect]
     Active Substance: RITUXIMAB
     Route: 050
  71. RITUXIMAB [Suspect]
     Active Substance: RITUXIMAB
  72. RITUXIMAB [Suspect]
     Active Substance: RITUXIMAB
     Route: 050
  73. RITUXIMAB [Suspect]
     Active Substance: RITUXIMAB
     Route: 050
  74. RITUXIMAB [Suspect]
     Active Substance: RITUXIMAB
     Route: 050
  75. ALENDRONIC ACID [Suspect]
     Active Substance: ALENDRONIC ACID
     Indication: Rheumatoid arthritis
  76. ALENDRONIC ACID [Suspect]
     Active Substance: ALENDRONIC ACID
     Route: 048
  77. ALENDRONIC ACID [Suspect]
     Active Substance: ALENDRONIC ACID
     Route: 050
  78. ALENDRONIC ACID [Suspect]
     Active Substance: ALENDRONIC ACID
     Route: 048
  79. ALENDRONIC ACID [Suspect]
     Active Substance: ALENDRONIC ACID
     Route: 050
  80. ALENDRONIC ACID [Suspect]
     Active Substance: ALENDRONIC ACID
     Route: 016
  81. ALENDRONIC ACID [Suspect]
     Active Substance: ALENDRONIC ACID
     Route: 048
  82. ALENDRONIC ACID [Suspect]
     Active Substance: ALENDRONIC ACID
     Route: 065
  83. CELEBREX [Suspect]
     Active Substance: CELECOXIB
     Indication: Product used for unknown indication
     Dosage: 2 DOSAGE FORM, QD
     Route: 050
  84. SIMPONI [Suspect]
     Active Substance: GOLIMUMAB
     Indication: Rheumatoid arthritis
  85. SIMPONI [Suspect]
     Active Substance: GOLIMUMAB
  86. ARAVA [Suspect]
     Active Substance: LEFLUNOMIDE
     Indication: Rheumatoid arthritis
  87. ARAVA [Suspect]
     Active Substance: LEFLUNOMIDE
     Route: 048
  88. ARAVA [Suspect]
     Active Substance: LEFLUNOMIDE
  89. ARAVA [Suspect]
     Active Substance: LEFLUNOMIDE
  90. ARAVA [Suspect]
     Active Substance: LEFLUNOMIDE
  91. ARAVA [Suspect]
     Active Substance: LEFLUNOMIDE
     Route: 048
  92. ARAVA [Suspect]
     Active Substance: LEFLUNOMIDE
     Route: 048
  93. ARAVA [Suspect]
     Active Substance: LEFLUNOMIDE
     Route: 048
  94. ARAVA [Suspect]
     Active Substance: LEFLUNOMIDE
     Route: 048
  95. ARAVA [Suspect]
     Active Substance: LEFLUNOMIDE
  96. SIRUKUMAB [Suspect]
     Active Substance: SIRUKUMAB
     Indication: Product used for unknown indication
  97. SIRUKUMAB [Suspect]
     Active Substance: SIRUKUMAB
  98. VITAMIN C [Suspect]
     Active Substance: ASCORBIC ACID
     Indication: Product used for unknown indication
  99. VITAMIN C [Suspect]
     Active Substance: ASCORBIC ACID
  100. XELJANZ [Suspect]
     Active Substance: TOFACITINIB CITRATE
     Indication: Rheumatoid arthritis
  101. XELJANZ [Suspect]
     Active Substance: TOFACITINIB CITRATE
     Route: 065
  102. ACETAMINOPHEN [Suspect]
     Active Substance: ACETAMINOPHEN
     Indication: Rheumatoid arthritis
  103. CALCIUM CARBONATE [Suspect]
     Active Substance: CALCIUM CARBONATE
     Indication: Product used for unknown indication
  104. CALCIUM CARBONATE [Suspect]
     Active Substance: CALCIUM CARBONATE
  105. FLUMETHASONE [Suspect]
     Active Substance: FLUMETHASONE
     Indication: Product used for unknown indication
  106. FLUMETHASONE [Suspect]
     Active Substance: FLUMETHASONE
  107. PHENYLEPHRINE HYDROCHLORIDE [Suspect]
     Active Substance: PHENYLEPHRINE HYDROCHLORIDE
     Indication: Rheumatoid arthritis
  108. PHENYLEPHRINE HYDROCHLORIDE [Suspect]
     Active Substance: PHENYLEPHRINE HYDROCHLORIDE
  109. PHENYLEPHRINE HYDROCHLORIDE [Suspect]
     Active Substance: PHENYLEPHRINE HYDROCHLORIDE
  110. CALCIUM GLUBIONATE [Suspect]
     Active Substance: CALCIUM GLUBIONATE
     Indication: Product used for unknown indication
     Route: 050
  111. CALCIUM GLUBIONATE [Suspect]
     Active Substance: CALCIUM GLUBIONATE
     Route: 050
  112. DOMPERIDONE [Suspect]
     Active Substance: DOMPERIDONE
     Indication: Product used for unknown indication
  113. DOMPERIDONE [Suspect]
     Active Substance: DOMPERIDONE
  114. FOSAMAX [Suspect]
     Active Substance: ALENDRONATE SODIUM
     Indication: Rheumatoid arthritis
  115. FOSAMAX [Suspect]
     Active Substance: ALENDRONATE SODIUM
     Route: 050
  116. FOSAMAX [Suspect]
     Active Substance: ALENDRONATE SODIUM
     Route: 050
  117. FOSAMAX [Suspect]
     Active Substance: ALENDRONATE SODIUM
  118. FOSAMAX [Suspect]
     Active Substance: ALENDRONATE SODIUM
     Route: 050
  119. FOSAMAX [Suspect]
     Active Substance: ALENDRONATE SODIUM
     Route: 050
  120. FOSAMAX [Suspect]
     Active Substance: ALENDRONATE SODIUM
     Route: 050
  121. FOSAMAX [Suspect]
     Active Substance: ALENDRONATE SODIUM
     Route: 050
  122. PSEUDOEPHEDRINE HYDROCHLORIDE [Suspect]
     Active Substance: PSEUDOEPHEDRINE HYDROCHLORIDE
     Indication: Rheumatoid arthritis
  123. PSEUDOEPHEDRINE HYDROCHLORIDE [Suspect]
     Active Substance: PSEUDOEPHEDRINE HYDROCHLORIDE
  124. ATOMOXETINE [Suspect]
     Active Substance: ATOMOXETINE
     Indication: Migraine
  125. ATOMOXETINE [Suspect]
     Active Substance: ATOMOXETINE
  126. DICLOFENAC SODIUM [Suspect]
     Active Substance: DICLOFENAC SODIUM
     Indication: Product used for unknown indication
     Route: 050
  127. DICLOFENAC SODIUM [Suspect]
     Active Substance: DICLOFENAC SODIUM
  128. DICLOFENAC SODIUM [Suspect]
     Active Substance: DICLOFENAC SODIUM
  129. GOLIMUMAB [Suspect]
     Active Substance: GOLIMUMAB
     Indication: Rheumatoid arthritis
  130. ACTEMRA [Suspect]
     Active Substance: TOCILIZUMAB
     Indication: Rheumatoid arthritis
  131. ACTEMRA [Suspect]
     Active Substance: TOCILIZUMAB
  132. ACTEMRA [Suspect]
     Active Substance: TOCILIZUMAB
  133. ACTEMRA [Suspect]
     Active Substance: TOCILIZUMAB
  134. ACTEMRA [Suspect]
     Active Substance: TOCILIZUMAB
  135. ACTEMRA [Suspect]
     Active Substance: TOCILIZUMAB
  136. ACTEMRA [Suspect]
     Active Substance: TOCILIZUMAB
  137. ACTEMRA [Suspect]
     Active Substance: TOCILIZUMAB
  138. ACTEMRA [Suspect]
     Active Substance: TOCILIZUMAB
  139. ACTEMRA [Suspect]
     Active Substance: TOCILIZUMAB
  140. ACTEMRA [Suspect]
     Active Substance: TOCILIZUMAB
  141. ACTEMRA [Suspect]
     Active Substance: TOCILIZUMAB
  142. ACTEMRA [Suspect]
     Active Substance: TOCILIZUMAB
  143. ACTEMRA [Suspect]
     Active Substance: TOCILIZUMAB
  144. ACTEMRA [Suspect]
     Active Substance: TOCILIZUMAB
  145. ACTEMRA [Suspect]
     Active Substance: TOCILIZUMAB
  146. ACTEMRA [Suspect]
     Active Substance: TOCILIZUMAB
  147. ACTEMRA [Suspect]
     Active Substance: TOCILIZUMAB
  148. ACTEMRA [Suspect]
     Active Substance: TOCILIZUMAB
  149. ACTEMRA [Suspect]
     Active Substance: TOCILIZUMAB
  150. ACTEMRA [Suspect]
     Active Substance: TOCILIZUMAB
  151. ACTEMRA [Suspect]
     Active Substance: TOCILIZUMAB
  152. ACTEMRA [Suspect]
     Active Substance: TOCILIZUMAB
  153. ACTEMRA [Suspect]
     Active Substance: TOCILIZUMAB
  154. ACTEMRA [Suspect]
     Active Substance: TOCILIZUMAB
  155. ACTEMRA [Suspect]
     Active Substance: TOCILIZUMAB
  156. VITAMIN D3 [Suspect]
     Active Substance: CHOLECALCIFEROL
     Indication: Product used for unknown indication
  157. VITAMIN D3 [Suspect]
     Active Substance: CHOLECALCIFEROL
  158. HYDROCORTISONE [Suspect]
     Active Substance: HYDROCORTISONE
     Indication: Product used for unknown indication
  159. HYDROCORTISONE [Suspect]
     Active Substance: HYDROCORTISONE
  160. CELECOXIB [Suspect]
     Active Substance: CELECOXIB
     Indication: Product used for unknown indication
     Dosage: 2 DOSAGE FORM, QD ROUTE : UNKNOWN
  161. CELECOXIB [Suspect]
     Active Substance: CELECOXIB
     Dosage: 1 DOSAGE FORM, QD (CAPSULE) ROUTE : UNKNOWN
  162. CHLORHEXIDINE GLUCONATE [Suspect]
     Active Substance: CHLORHEXIDINE GLUCONATE
     Indication: Product used for unknown indication
  163. CHLORHEXIDINE GLUCONATE [Suspect]
     Active Substance: CHLORHEXIDINE GLUCONATE
  164. CHLORHEXIDINE GLUCONATE [Suspect]
     Active Substance: CHLORHEXIDINE GLUCONATE
  165. CHLORHEXIDINE GLUCONATE [Suspect]
     Active Substance: CHLORHEXIDINE GLUCONATE
  166. INFLIXIMAB [Suspect]
     Active Substance: INFLIXIMAB
     Indication: Rheumatoid arthritis
     Route: 042
  167. INFLIXIMAB [Suspect]
     Active Substance: INFLIXIMAB
     Route: 050
  168. INFLIXIMAB [Suspect]
     Active Substance: INFLIXIMAB
  169. INFLIXIMAB [Suspect]
     Active Substance: INFLIXIMAB
     Route: 042
  170. INFLIXIMAB [Suspect]
     Active Substance: INFLIXIMAB
     Route: 050
  171. INFLIXIMAB [Suspect]
     Active Substance: INFLIXIMAB
  172. ERELZI [Suspect]
     Active Substance: ETANERCEPT-SZZS
     Indication: Rheumatoid arthritis
  173. ERELZI [Suspect]
     Active Substance: ETANERCEPT-SZZS
  174. COSENTYX [Suspect]
     Active Substance: SECUKINUMAB
     Indication: Psoriatic arthropathy
  175. COSENTYX [Suspect]
     Active Substance: SECUKINUMAB
     Indication: Rheumatoid arthritis
  176. COSENTYX [Suspect]
     Active Substance: SECUKINUMAB
  177. TRAMADOL [Suspect]
     Active Substance: TRAMADOL
     Indication: Product used for unknown indication
  178. TRAMADOL [Suspect]
     Active Substance: TRAMADOL
  179. ADALIMUMAB [Suspect]
     Active Substance: ADALIMUMAB
     Indication: Rheumatoid arthritis
     Route: 058
  180. ADALIMUMAB [Suspect]
     Active Substance: ADALIMUMAB
     Route: 050
  181. ADALIMUMAB [Suspect]
     Active Substance: ADALIMUMAB
     Route: 058
  182. ADALIMUMAB [Suspect]
     Active Substance: ADALIMUMAB
     Route: 058
  183. OXYCODONE [Suspect]
     Active Substance: OXYCODONE
     Indication: Product used for unknown indication
  184. OXYCODONE [Suspect]
     Active Substance: OXYCODONE
  185. RAMIPRIL [Suspect]
     Active Substance: RAMIPRIL
     Indication: Rheumatoid arthritis
  186. RAMIPRIL [Suspect]
     Active Substance: RAMIPRIL
  187. SODIUM AUROTIOSULFATE [Suspect]
     Active Substance: SODIUM AUROTIOSULFATE
     Indication: Product used for unknown indication
  188. SODIUM AUROTIOSULFATE [Suspect]
     Active Substance: SODIUM AUROTIOSULFATE
  189. TRAZODONE [Suspect]
     Active Substance: TRAZODONE HYDROCHLORIDE
     Indication: Product used for unknown indication
  190. TRAZODONE [Suspect]
     Active Substance: TRAZODONE HYDROCHLORIDE
  191. TRAZODONE [Suspect]
     Active Substance: TRAZODONE HYDROCHLORIDE
  192. LEFLUNOMIDE [Suspect]
     Active Substance: LEFLUNOMIDE
     Indication: Rheumatoid arthritis
     Dosage: UNK UNK, QD
     Route: 050
  193. LEFLUNOMIDE [Suspect]
     Active Substance: LEFLUNOMIDE
     Route: 050
  194. LEFLUNOMIDE [Suspect]
     Active Substance: LEFLUNOMIDE
     Route: 050
  195. LEFLUNOMIDE [Suspect]
     Active Substance: LEFLUNOMIDE
     Route: 050
  196. LEFLUNOMIDE [Suspect]
     Active Substance: LEFLUNOMIDE
     Dosage: 20 MG, QD
     Route: 050
  197. LEFLUNOMIDE [Suspect]
     Active Substance: LEFLUNOMIDE
  198. LEFLUNOMIDE [Suspect]
     Active Substance: LEFLUNOMIDE
     Route: 050
  199. LEFLUNOMIDE [Suspect]
     Active Substance: LEFLUNOMIDE
  200. LEFLUNOMIDE [Suspect]
     Active Substance: LEFLUNOMIDE
     Dosage: 5 MG, QD
     Route: 050
  201. LEFLUNOMIDE [Suspect]
     Active Substance: LEFLUNOMIDE
     Route: 050
  202. TRETINOIN [Suspect]
     Active Substance: TRETINOIN
     Indication: Product used for unknown indication
  203. TRETINOIN [Suspect]
     Active Substance: TRETINOIN
  204. AZATHIOPRINE SODIUM [Suspect]
     Active Substance: AZATHIOPRINE SODIUM
     Indication: Product used for unknown indication
  205. AZATHIOPRINE SODIUM [Suspect]
     Active Substance: AZATHIOPRINE SODIUM
  206. BUTRANS [Suspect]
     Active Substance: BUPRENORPHINE
     Indication: Product used for unknown indication
  207. BUTRANS [Suspect]
     Active Substance: BUPRENORPHINE
  208. BOTULINUM TOXIN TYPE A [Suspect]
     Active Substance: BOTULINUM TOXIN TYPE A
     Indication: Product used for unknown indication
  209. BOTULINUM TOXIN TYPE A [Suspect]
     Active Substance: BOTULINUM TOXIN TYPE A
  210. CERTOLIZUMAB PEGOL [Suspect]
     Active Substance: CERTOLIZUMAB PEGOL
     Indication: Rheumatoid arthritis
     Route: 058
  211. CERTOLIZUMAB PEGOL [Suspect]
     Active Substance: CERTOLIZUMAB PEGOL
  212. CERTOLIZUMAB PEGOL [Suspect]
     Active Substance: CERTOLIZUMAB PEGOL
     Route: 050
  213. CERTOLIZUMAB PEGOL [Suspect]
     Active Substance: CERTOLIZUMAB PEGOL
  214. CERTOLIZUMAB PEGOL [Suspect]
     Active Substance: CERTOLIZUMAB PEGOL
  215. CERTOLIZUMAB PEGOL [Suspect]
     Active Substance: CERTOLIZUMAB PEGOL
  216. CERTOLIZUMAB PEGOL [Suspect]
     Active Substance: CERTOLIZUMAB PEGOL
  217. CETIRIZINE HYDROCHLORIDE [Suspect]
     Active Substance: CETIRIZINE HYDROCHLORIDE
     Indication: Rheumatoid arthritis
     Route: 048
  218. CETIRIZINE HYDROCHLORIDE [Suspect]
     Active Substance: CETIRIZINE HYDROCHLORIDE
     Route: 048
  219. CETIRIZINE HYDROCHLORIDE [Suspect]
     Active Substance: CETIRIZINE HYDROCHLORIDE
     Route: 048
  220. CETIRIZINE HYDROCHLORIDE [Suspect]
     Active Substance: CETIRIZINE HYDROCHLORIDE
  221. CETIRIZINE HYDROCHLORIDE [Suspect]
     Active Substance: CETIRIZINE HYDROCHLORIDE
     Route: 050
  222. CETIRIZINE HYDROCHLORIDE [Suspect]
     Active Substance: CETIRIZINE HYDROCHLORIDE
     Route: 050
  223. CETIRIZINE HYDROCHLORIDE [Suspect]
     Active Substance: CETIRIZINE HYDROCHLORIDE
  224. CETIRIZINE HYDROCHLORIDE [Suspect]
     Active Substance: CETIRIZINE HYDROCHLORIDE
  225. CETIRIZINE HYDROCHLORIDE [Suspect]
     Active Substance: CETIRIZINE HYDROCHLORIDE
  226. CETIRIZINE HYDROCHLORIDE [Suspect]
     Active Substance: CETIRIZINE HYDROCHLORIDE
  227. CETIRIZINE HYDROCHLORIDE [Suspect]
     Active Substance: CETIRIZINE HYDROCHLORIDE
     Route: 048
  228. CETIRIZINE HYDROCHLORIDE [Suspect]
     Active Substance: CETIRIZINE HYDROCHLORIDE
  229. CETIRIZINE HYDROCHLORIDE [Suspect]
     Active Substance: CETIRIZINE HYDROCHLORIDE
     Route: 050
  230. CETIRIZINE HYDROCHLORIDE [Suspect]
     Active Substance: CETIRIZINE HYDROCHLORIDE
  231. CETIRIZINE HYDROCHLORIDE [Suspect]
     Active Substance: CETIRIZINE HYDROCHLORIDE
  232. HUMIRA [Suspect]
     Active Substance: ADALIMUMAB
     Indication: Rheumatoid arthritis
  233. HUMIRA [Suspect]
     Active Substance: ADALIMUMAB
  234. HUMIRA [Suspect]
     Active Substance: ADALIMUMAB
     Route: 058
  235. HUMIRA [Suspect]
     Active Substance: ADALIMUMAB
     Route: 058
  236. HUMIRA [Suspect]
     Active Substance: ADALIMUMAB
     Route: 058
  237. HUMIRA [Suspect]
     Active Substance: ADALIMUMAB
     Route: 050
  238. HUMIRA [Suspect]
     Active Substance: ADALIMUMAB
     Route: 058
  239. HYDROXYCHLOROQUINE [Suspect]
     Active Substance: HYDROXYCHLOROQUINE
     Indication: Rheumatoid arthritis
  240. HYDROXYCHLOROQUINE [Suspect]
     Active Substance: HYDROXYCHLOROQUINE
  241. HYDROXYCHLOROQUINE [Suspect]
     Active Substance: HYDROXYCHLOROQUINE
  242. HYDROXYCHLOROQUINE [Suspect]
     Active Substance: HYDROXYCHLOROQUINE
  243. HYDROXYCHLOROQUINE [Suspect]
     Active Substance: HYDROXYCHLOROQUINE
     Route: 048
  244. HYDROXYCHLOROQUINE [Suspect]
     Active Substance: HYDROXYCHLOROQUINE
  245. HYDROXYCHLOROQUINE [Suspect]
     Active Substance: HYDROXYCHLOROQUINE
     Dosage: 200 MG, QD
     Route: 048
  246. HYDROXYCHLOROQUINE [Suspect]
     Active Substance: HYDROXYCHLOROQUINE
     Dosage: 400 MG, QD
     Route: 048
  247. HYDROXYCHLOROQUINE [Suspect]
     Active Substance: HYDROXYCHLOROQUINE
     Dosage: 400 MG, QD
     Route: 048
  248. HYDROXYCHLOROQUINE [Suspect]
     Active Substance: HYDROXYCHLOROQUINE
     Route: 048
  249. HYDROXYCHLOROQUINE [Suspect]
     Active Substance: HYDROXYCHLOROQUINE
     Route: 048
  250. HYDROXYCHLOROQUINE [Suspect]
     Active Substance: HYDROXYCHLOROQUINE
     Dosage: 400 MG, QD
     Route: 048
  251. HYDROXYCHLOROQUINE [Suspect]
     Active Substance: HYDROXYCHLOROQUINE
     Dosage: 400 MG, QD ROUTE : UNKNOWN
  252. HYDROXYCHLOROQUINE [Suspect]
     Active Substance: HYDROXYCHLOROQUINE
  253. HYDROXYCHLOROQUINE [Suspect]
     Active Substance: HYDROXYCHLOROQUINE
  254. HYDROXYCHLOROQUINE [Suspect]
     Active Substance: HYDROXYCHLOROQUINE
     Dosage: 400 MG, QD ROUTE : UNKNOWN
  255. HYDROXYCHLOROQUINE [Suspect]
     Active Substance: HYDROXYCHLOROQUINE
     Route: 048
  256. HYDROXYCHLOROQUINE [Suspect]
     Active Substance: HYDROXYCHLOROQUINE
     Dosage: 400 MG, QD ROUTE :SUBCUTANEOUS USE
  257. HYDROXYCHLOROQUINE [Suspect]
     Active Substance: HYDROXYCHLOROQUINE
  258. HYDROXYCHLOROQUINE [Suspect]
     Active Substance: HYDROXYCHLOROQUINE
  259. HYDROXYCHLOROQUINE [Suspect]
     Active Substance: HYDROXYCHLOROQUINE
     Dosage: 400 MG, QD
     Route: 048
  260. HYDROXYCHLOROQUINE [Suspect]
     Active Substance: HYDROXYCHLOROQUINE
     Dosage: 400 MG, QD
     Route: 048
  261. HYDROXYCHLOROQUINE [Suspect]
     Active Substance: HYDROXYCHLOROQUINE
     Dosage: 400 MG, QD ROUTE : UNKNOWN
  262. HYDROXYCHLOROQUINE [Suspect]
     Active Substance: HYDROXYCHLOROQUINE
  263. HYDROXYCHLOROQUINE [Suspect]
     Active Substance: HYDROXYCHLOROQUINE
  264. HYDROXYCHLOROQUINE [Suspect]
     Active Substance: HYDROXYCHLOROQUINE
     Dosage: 400 MG, QD ROUTE :SUBCUTANEOUS USE
  265. HYDROXYCHLOROQUINE SULFATE [Suspect]
     Active Substance: HYDROXYCHLOROQUINE SULFATE
     Indication: Rheumatoid arthritis
     Route: 050
  266. HYDROXYCHLOROQUINE SULFATE [Suspect]
     Active Substance: HYDROXYCHLOROQUINE SULFATE
     Route: 048
  267. HYDROXYCHLOROQUINE SULFATE [Suspect]
     Active Substance: HYDROXYCHLOROQUINE SULFATE
  268. HYDROXYCHLOROQUINE SULFATE [Suspect]
     Active Substance: HYDROXYCHLOROQUINE SULFATE
  269. HYDROXYCHLOROQUINE SULFATE [Suspect]
     Active Substance: HYDROXYCHLOROQUINE SULFATE
     Route: 050
  270. HYDROXYCHLOROQUINE SULFATE [Suspect]
     Active Substance: HYDROXYCHLOROQUINE SULFATE
  271. HYDROXYCHLOROQUINE SULFATE [Suspect]
     Active Substance: HYDROXYCHLOROQUINE SULFATE
     Route: 050
  272. HYDROXYCHLOROQUINE SULFATE [Suspect]
     Active Substance: HYDROXYCHLOROQUINE SULFATE
     Dosage: 400 MG, QD
     Route: 048
  273. HYDROXYCHLOROQUINE SULFATE [Suspect]
     Active Substance: HYDROXYCHLOROQUINE SULFATE
  274. LAMICTAL [Suspect]
     Active Substance: LAMOTRIGINE
     Indication: Product used for unknown indication
     Route: 048
  275. LAMICTAL [Suspect]
     Active Substance: LAMOTRIGINE
     Route: 048
  276. LAMICTAL [Suspect]
     Active Substance: LAMOTRIGINE
     Route: 048
  277. LAMICTAL [Suspect]
     Active Substance: LAMOTRIGINE
     Route: 048
  278. LAMICTAL [Suspect]
     Active Substance: LAMOTRIGINE
     Route: 050
  279. LAMICTAL [Suspect]
     Active Substance: LAMOTRIGINE
  280. LAMICTAL [Suspect]
     Active Substance: LAMOTRIGINE
  281. AIMOVIG [Suspect]
     Active Substance: ERENUMAB-AOOE
     Indication: Migraine
  282. AIMOVIG [Suspect]
     Active Substance: ERENUMAB-AOOE
     Route: 065
  283. CANDESARTAN [Suspect]
     Active Substance: CANDESARTAN
     Indication: Migraine
     Route: 050
  284. CANDESARTAN [Suspect]
     Active Substance: CANDESARTAN
     Route: 048
  285. CIMZIA [Suspect]
     Active Substance: CERTOLIZUMAB PEGOL
     Indication: Rheumatoid arthritis
     Route: 058
  286. CIMZIA [Suspect]
     Active Substance: CERTOLIZUMAB PEGOL
     Route: 058
  287. CIMZIA [Suspect]
     Active Substance: CERTOLIZUMAB PEGOL
  288. CIMZIA [Suspect]
     Active Substance: CERTOLIZUMAB PEGOL
  289. CIMZIA [Suspect]
     Active Substance: CERTOLIZUMAB PEGOL
     Route: 058
  290. ENBREL [Suspect]
     Active Substance: ETANERCEPT
     Indication: Rheumatoid arthritis
     Route: 050
  291. ENBREL [Suspect]
     Active Substance: ETANERCEPT
     Route: 058
  292. ENBREL [Suspect]
     Active Substance: ETANERCEPT
     Route: 058
  293. ENBREL [Suspect]
     Active Substance: ETANERCEPT
     Route: 058
  294. ENBREL [Suspect]
     Active Substance: ETANERCEPT
  295. ENBREL [Suspect]
     Active Substance: ETANERCEPT
     Route: 058
  296. ENBREL [Suspect]
     Active Substance: ETANERCEPT
     Route: 050
  297. ENBREL [Suspect]
     Active Substance: ETANERCEPT
     Route: 050
  298. ENBREL [Suspect]
     Active Substance: ETANERCEPT
  299. ENBREL [Suspect]
     Active Substance: ETANERCEPT
     Route: 050
  300. DESOXIMETASONE [Suspect]
     Active Substance: DESOXIMETASONE
     Indication: Rheumatoid arthritis
     Route: 048
  301. FOLIC ACID [Suspect]
     Active Substance: FOLIC ACID
     Indication: Rheumatoid arthritis
  302. FOLIC ACID [Suspect]
     Active Substance: FOLIC ACID
     Indication: Product used for unknown indication
  303. FOLIC ACID [Suspect]
     Active Substance: FOLIC ACID
     Route: 050
  304. FOLIC ACID [Suspect]
     Active Substance: FOLIC ACID
     Route: 048
  305. FOLIC ACID [Suspect]
     Active Substance: FOLIC ACID
  306. FOLIC ACID [Suspect]
     Active Substance: FOLIC ACID
  307. FOLIC ACID [Suspect]
     Active Substance: FOLIC ACID
  308. FOLIC ACID [Suspect]
     Active Substance: FOLIC ACID
  309. FOLIC ACID [Suspect]
     Active Substance: FOLIC ACID
  310. FOLIC ACID [Suspect]
     Active Substance: FOLIC ACID
  311. FOLIC ACID [Suspect]
     Active Substance: FOLIC ACID
  312. FOLIC ACID [Suspect]
     Active Substance: FOLIC ACID

REACTIONS (48)
  - Drug-induced liver injury [Fatal]
  - Hypersensitivity [Fatal]
  - Therapeutic product effect decreased [Fatal]
  - Alopecia [Fatal]
  - Hepatitis [Fatal]
  - Arthralgia [Fatal]
  - Vomiting [Fatal]
  - Glossodynia [Fatal]
  - Malaise [Fatal]
  - Hand deformity [Fatal]
  - Product use issue [Fatal]
  - Anti-cyclic citrullinated peptide antibody positive [Fatal]
  - Dyspepsia [Fatal]
  - Hepatic enzyme increased [Fatal]
  - Synovitis [Fatal]
  - General physical health deterioration [Fatal]
  - Drug ineffective [Fatal]
  - Exposure during pregnancy [Fatal]
  - Product use in unapproved indication [Fatal]
  - Adverse reaction [Fatal]
  - Arthropathy [Fatal]
  - Insomnia [Fatal]
  - Fatigue [Fatal]
  - Product quality issue [Fatal]
  - Hypertension [Fatal]
  - Grip strength decreased [Fatal]
  - Blood cholesterol increased [Fatal]
  - Treatment failure [Fatal]
  - Weight increased [Fatal]
  - Musculoskeletal stiffness [Fatal]
  - Taste disorder [Fatal]
  - Abdominal distension [Fatal]
  - Wheezing [Fatal]
  - Wound [Fatal]
  - Contraindicated product administered [Fatal]
  - Therapeutic product effect incomplete [Fatal]
  - Drug intolerance [Fatal]
  - Gastrointestinal disorder [Fatal]
  - Headache [Fatal]
  - Intentional product use issue [Fatal]
  - Fall [Fatal]
  - Coeliac disease [Fatal]
  - Drug hypersensitivity [Fatal]
  - Finger deformity [Fatal]
  - Product label confusion [Fatal]
  - Condition aggravated [Fatal]
  - Off label use [Fatal]
  - Abdominal discomfort [Fatal]
